FAERS Safety Report 11114865 (Version 4)
Quarter: 2018Q2

REPORT INFORMATION
  Report Type: Report from Study
  Country: KR (occurrence: KR)
  Receive Date: 20150515
  Receipt Date: 20180622
  Transmission Date: 20180711
  Serious: Yes (Hospitalization)
  Sender: FDA-Public Use
  Company Number: KR-EISAI MEDICAL RESEARCH-EC-2015-005945

PATIENT
  Age: 42 Year
  Sex: Female
  Weight: 60 kg

DRUGS (7)
  1. LEGALON [Concomitant]
     Active Substance: DIETARY SUPPLEMENT\HERBALS\MILK THISTLE
     Route: 048
     Dates: start: 20150325
  2. TATHION [Concomitant]
     Active Substance: GLUTATHIONE
     Route: 041
     Dates: start: 20150325
  3. HALAVEN [Suspect]
     Active Substance: ERIBULIN MESYLATE
     Route: 041
     Dates: start: 20150604, end: 20150821
  4. DICAMAX [Concomitant]
     Route: 048
     Dates: start: 20150325
  5. HALAVEN [Suspect]
     Active Substance: ERIBULIN MESYLATE
     Route: 041
     Dates: start: 20150507, end: 20150517
  6. ZOMEBON [Concomitant]
     Route: 041
     Dates: start: 20150325
  7. HALAVEN [Suspect]
     Active Substance: ERIBULIN MESYLATE
     Indication: BREAST CANCER METASTATIC
     Route: 041
     Dates: start: 20150325, end: 20150422

REACTIONS (2)
  - Liver function test increased [Recovering/Resolving]
  - Neutropenia [Recovered/Resolved]

NARRATIVE: CASE EVENT DATE: 20150409
